FAERS Safety Report 20010654 (Version 1)
Quarter: 2021Q4

REPORT INFORMATION
  Report Type: Spontaneous
  Country: US (occurrence: US)
  Receive Date: 20211028
  Receipt Date: 20211028
  Transmission Date: 20220304
  Serious: No
  Sender: FDA-Public Use
  Company Number: US-CHIESI-2021CHF04572

PATIENT
  Age: 31 Year
  Sex: Male

DRUGS (2)
  1. REVCOVI [Suspect]
     Active Substance: ELAPEGADEMASE-LVLR
     Indication: Combined immunodeficiency
     Dosage: 10.8 MG TWICE A WEEK
     Dates: start: 20210804
  2. VITAMINS [Concomitant]
     Active Substance: VITAMINS
     Indication: Product used for unknown indication
     Dosage: UNK

REACTIONS (1)
  - COVID-19 [Not Recovered/Not Resolved]

NARRATIVE: CASE EVENT DATE: 20210910
